FAERS Safety Report 8908094 (Version 1)
Quarter: 2012Q4

REPORT INFORMATION
  Report Type: 
  Country: US (occurrence: US)
  Receive Date: 20121114
  Receipt Date: 20121114
  Transmission Date: 20130627
  Serious: No
  Sender: FDA-Public Use
  Company Number: US-BAYER-2012-117507

PATIENT
  Age: 57 Year
  Sex: Female
  Weight: 80.27 kg

DRUGS (8)
  1. BETASERON [Suspect]
     Dosage: 0.25 mg/ml, QOD
     Route: 058
  2. EFFEXOR [Concomitant]
     Dosage: UNK
  3. GABAPENTIN [Concomitant]
  4. IBUPROFEN [Concomitant]
  5. PREDNISONE [Concomitant]
  6. VITAMIN D [Concomitant]
  7. OMEGA-3 [Concomitant]
  8. GLUCOS/COND 250-200 [Concomitant]

REACTIONS (1)
  - Influenza like illness [Unknown]
